FAERS Safety Report 19620194 (Version 1)
Quarter: 2021Q3

REPORT INFORMATION
  Report Type: Spontaneous
  Country: US (occurrence: US)
  Receive Date: 20210728
  Receipt Date: 20210728
  Transmission Date: 20211014
  Serious: No
  Sender: FDA-Public Use
  Company Number: US-ROCHE-2754456

PATIENT
  Age: 64 Year
  Sex: Female

DRUGS (1)
  1. XELODA [Suspect]
     Active Substance: CAPECITABINE
     Indication: PRODUCT USED FOR UNKNOWN INDICATION
     Route: 048
     Dates: start: 202012

REACTIONS (9)
  - Abdominal pain upper [Unknown]
  - Hyperhidrosis [Unknown]
  - Fatigue [Unknown]
  - Pain in extremity [Recovered/Resolved]
  - Vision blurred [Unknown]
  - Unevaluable event [Unknown]
  - Skin exfoliation [Unknown]
  - Headache [Unknown]
  - Burning sensation [Unknown]

NARRATIVE: CASE EVENT DATE: 20210104
